FAERS Safety Report 9233015 (Version 1)
Quarter: 2013Q2

REPORT INFORMATION
  Report Type: Spontaneous
  Country: US (occurrence: None)
  Receive Date: 20130415
  Receipt Date: 20130415
  Transmission Date: 20140414
  Serious: Yes (Hospitalization)
  Sender: FDA-Public Use
  Company Number: None

PATIENT
  Age: 72 Year
  Sex: Female
  Weight: 54.8 kg

DRUGS (10)
  1. ERLOTINIB [Suspect]
     Indication: NON-SMALL CELL LUNG CANCER
     Route: 048
     Dates: start: 200705, end: 201211
  2. AMLODIPINE (NORVASC) [Concomitant]
  3. ERLOTINIB [Concomitant]
  4. MAG/CARB/AL HYDROX/ALGINIC AC (GAVISCON ORAL) [Concomitant]
  5. SODIUM CHLORIDE (SALINE NASAL) [Concomitant]
  6. VICODIN [Concomitant]
  7. LORAZEPAM (ATIVAN) [Concomitant]
  8. ZOLPIDEM (AMBIEN) [Concomitant]
  9. OMEPRAZOLE [Concomitant]
  10. TRIAMTEENE-HYDROCHLOROTHIAZIDE [Concomitant]

REACTIONS (6)
  - Abdominal pain [None]
  - Dyspepsia [None]
  - Abdominal distension [None]
  - Gastrointestinal motility disorder [None]
  - Weight decreased [None]
  - Early satiety [None]
